FAERS Safety Report 7931645-X (Version None)
Quarter: 2011Q4

REPORT INFORMATION
  Report Type: 
  Country: None (occurrence: None)
  Receive Date: 20111121
  Receipt Date: 20111110
  Transmission Date: 20120403
  Serious: Yes (Other)
  Sender: FDA-Public Use
  Company Number: PHHY2011DE86260

PATIENT
  Sex: Female
  Weight: 52 kg

DRUGS (5)
  1. TASIGNA [Suspect]
     Indication: CHRONIC MYELOID LEUKAEMIA
     Dosage: 400 MG, BID
     Route: 048
     Dates: start: 20100401
  2. ZOLOFT [Concomitant]
     Indication: DEPRESSION
     Dosage: 100 MG PER DAY
     Route: 048
     Dates: start: 20090805
  3. TASIGNA [Suspect]
     Dosage: 300 MG, BID
     Route: 048
     Dates: start: 20110404
  4. CLARIUM [Concomitant]
     Indication: PARKINSON'S DISEASE
     Dosage: 50 MG PER DAY
     Route: 048
     Dates: start: 20090114
  5. ACTONEL [Concomitant]
     Indication: OSTEOPOROSIS
     Dosage: 35 MG PER DAY
     Route: 048
     Dates: start: 20090114, end: 20100322

REACTIONS (2)
  - CONCOMITANT DISEASE AGGRAVATED [None]
  - PERIPHERAL ARTERIAL OCCLUSIVE DISEASE [None]
